FAERS Safety Report 18753593 (Version 8)
Quarter: 2021Q3

REPORT INFORMATION
  Report Type: Spontaneous
  Country: US (occurrence: US)
  Receive Date: 20210118
  Receipt Date: 20210826
  Transmission Date: 20211014
  Serious: Yes (Hospitalization, Other)
  Sender: FDA-Public Use
  Company Number: US-ALXN-A202100494

PATIENT
  Age: 47 Year
  Sex: Male

DRUGS (5)
  1. ULTOMIRIS [Suspect]
     Active Substance: RAVULIZUMAB-CWVZ
     Dosage: UNK, EVERY 8 WEEKS FOR 45 MINUTES
     Route: 042
     Dates: start: 202002
  2. TACROLIMUS. [Concomitant]
     Active Substance: TACROLIMUS
     Indication: ORGAN TRANSPLANT
     Dosage: UNK
     Route: 065
  3. TACROLIMUS. [Concomitant]
     Active Substance: TACROLIMUS
     Dosage: UNK
     Route: 065
  4. ULTOMIRIS [Suspect]
     Active Substance: RAVULIZUMAB-CWVZ
     Indication: ATYPICAL HAEMOLYTIC URAEMIC SYNDROME
     Dosage: UNK
     Route: 065
     Dates: start: 202001
  5. ULTOMIRIS [Suspect]
     Active Substance: RAVULIZUMAB-CWVZ
     Dosage: UNK, EVERY 8 WEEKS FOR 45 MINUTES
     Route: 065

REACTIONS (16)
  - Chills [Unknown]
  - Blood creatine increased [Unknown]
  - Headache [Recovered/Resolved]
  - Night sweats [Unknown]
  - Arthritis bacterial [Recovering/Resolving]
  - Groin pain [Unknown]
  - Muscle strain [Unknown]
  - Gait inability [Recovering/Resolving]
  - Pyrexia [Unknown]
  - Sepsis [Unknown]
  - Weight decreased [Unknown]
  - Diarrhoea [Unknown]
  - Fatigue [Unknown]
  - Pain [Recovering/Resolving]
  - Kidney transplant rejection [Not Recovered/Not Resolved]
  - Renal impairment [Unknown]

NARRATIVE: CASE EVENT DATE: 202101
